FAERS Safety Report 4736260-7 (Version None)
Quarter: 2005Q3

REPORT INFORMATION
  Report Type: 
  Country: None (occurrence: None)
  Receive Date: 20050805
  Receipt Date: 20050805
  Transmission Date: 20060218
  Serious: Yes (Disabling)
  Sender: FDA-Public Use
  Company Number: None

PATIENT
  Age: 36 Year
  Sex: Male
  Weight: 88.4514 kg

DRUGS (2)
  1. VIOXX [Suspect]
     Indication: ARTHRALGIA
     Dosage: FOR PAIN
  2. CELEBREX [Suspect]
     Indication: ARTHRALGIA
     Dosage: FOR PAIN

REACTIONS (1)
  - UNEVALUABLE EVENT [None]
